FAERS Safety Report 20085741 (Version 1)
Quarter: 2021Q4

REPORT INFORMATION
  Report Type: Report from Study
  Country: PL (occurrence: US)
  Receive Date: 20211118
  Receipt Date: 20211118
  Transmission Date: 20220303
  Serious: Yes (Hospitalization)
  Sender: FDA-Public Use
  Company Number: PL-KARYOPHARM-2021KPT001395

PATIENT
  Age: 55 Year
  Sex: Female
  Weight: 68 kg

DRUGS (20)
  1. SELINEXOR [Suspect]
     Active Substance: SELINEXOR
     Indication: Diffuse large B-cell lymphoma
     Dosage: 60 MG, DAYS 1 AND 8 OF A 21 DAY CYCLE
     Route: 048
     Dates: start: 20211019, end: 20211109
  2. RITUXIMAB [Suspect]
     Active Substance: RITUXIMAB
     Indication: Diffuse large B-cell lymphoma
     Dosage: 375 MG/M2, DAY 1 OF A 21 DAY CYCLE
     Route: 042
     Dates: start: 20211019
  3. GEMCITABINE [Suspect]
     Active Substance: GEMCITABINE
     Indication: Diffuse large B-cell lymphoma
     Dosage: 1000 MG/M2, DAYS 1 AND 8 OF A 21 DAYS CYCLE
     Route: 042
     Dates: start: 20211019, end: 20211109
  4. DEXAMETHASONE [Suspect]
     Active Substance: DEXAMETHASONE
     Indication: Diffuse large B-cell lymphoma
     Dosage: 20 MG, DAYS 1,2,3, AND 4 OF A 21 DAYS CYCLE
     Route: 048
     Dates: start: 20211019
  5. CISPLATIN [Suspect]
     Active Substance: CISPLATIN
     Indication: Diffuse large B-cell lymphoma
     Dosage: 75 MG/M2, DAY 1 OF A 21 DAY CYCLE
     Route: 042
     Dates: start: 20211019
  6. ALLOPURINOL [Concomitant]
     Active Substance: ALLOPURINOL
     Indication: Prophylaxis
     Dosage: 300 MG, QD
     Route: 048
     Dates: start: 202012
  7. HEVIRAN [ACICLOVIR SODIUM] [Concomitant]
     Indication: Antiviral prophylaxis
     Dosage: 400 MG, BID
     Route: 048
     Dates: start: 202012
  8. BISEPTOL [Concomitant]
     Active Substance: SULFAMETHOXAZOLE\TRIMETHOPRIM
     Indication: Antibiotic prophylaxis
     Dosage: 960 MG, 2X/WEEK
     Route: 048
     Dates: start: 202012
  9. OPIPRAMOL HYDROCHLORIDE [Concomitant]
     Active Substance: OPIPRAMOL HYDROCHLORIDE
     Indication: Prophylaxis
     Dosage: 50 MG, TID
     Route: 048
     Dates: start: 202107
  10. TORECAN [Concomitant]
     Active Substance: THIETHYLPERAZINE MALATE
     Indication: Prophylaxis of nausea and vomiting
     Dosage: 6.5 MG, PRN
     Route: 048
     Dates: start: 2021
  11. TRIMETAZIDINE DIHYDROCHLORIDE [Concomitant]
     Active Substance: TRIMETAZIDINE DIHYDROCHLORIDE
     Indication: Prophylaxis
     Dosage: 1 DOSAGE FORM, BID
     Route: 048
     Dates: start: 202109
  12. EMEND [Concomitant]
     Active Substance: APREPITANT
     Indication: Prophylaxis
     Dosage: 125 MG, ONCE
     Route: 048
     Dates: start: 20211019, end: 20211019
  13. EMEND [Concomitant]
     Active Substance: APREPITANT
     Dosage: 80 MG, QD
     Route: 048
     Dates: start: 20211020, end: 20211021
  14. ONDANSETRON [Concomitant]
     Active Substance: ONDANSETRON
     Indication: Prophylaxis
     Dosage: 8 MG, TID
     Route: 048
     Dates: start: 20211019, end: 20211021
  15. SODIUM CHLORIDE [Concomitant]
     Active Substance: SODIUM CHLORIDE
     Indication: Prophylaxis
     Dosage: 1000 ML, ONCE
     Route: 042
     Dates: start: 20211019, end: 20211019
  16. MAGNESIUM SULFATE [Concomitant]
     Active Substance: MAGNESIUM SULFATE
     Indication: Prophylaxis
     Dosage: 2 UNK, ONCE
     Route: 042
     Dates: start: 20211019, end: 20211019
  17. KCL CORRECTIVE [Concomitant]
     Indication: Prophylaxis
     Dosage: 1.5 UNK, ONCE
     Route: 042
     Dates: start: 20211019, end: 20211019
  18. MANNITOL [Concomitant]
     Active Substance: MANNITOL
     Dosage: 250 ML, ONCE
     Route: 042
     Dates: start: 20211019, end: 20211019
  19. CLEMASTINE [Concomitant]
     Active Substance: CLEMASTINE
     Indication: Prophylaxis
     Dosage: 2 MG, ONCE
     Route: 042
     Dates: start: 20211019, end: 20211019
  20. ACETAMINOPHEN [Concomitant]
     Active Substance: ACETAMINOPHEN
     Indication: Prophylaxis
     Dosage: 1 G, SINGLE
     Route: 042
     Dates: start: 20211019, end: 20211019

REACTIONS (1)
  - Anaemia [Recovered/Resolved]

NARRATIVE: CASE EVENT DATE: 20211109
